FAERS Safety Report 9854983 (Version 1)
Quarter: 2013Q4

REPORT INFORMATION
  Report Type: Spontaneous
  Country: US (occurrence: None)
  Receive Date: 20131226
  Receipt Date: 20131226
  Transmission Date: 20140711
  Serious: Yes (Hospitalization)
  Sender: FDA-Public Use
  Company Number: PHHY2013US028386

PATIENT
  Age: 74 Year
  Sex: Female

DRUGS (2)
  1. EXFORGE (VALSARTAN, AMLODIPINE) UNKNOWN [Suspect]
     Indication: BLOOD PRESSURE ABNORMAL
  2. GAMMAGARD (IMMUNOGLOBULIN HUMAN NORMAL) [Concomitant]

REACTIONS (1)
  - Nephrolithiasis [None]
